FAERS Safety Report 7774974-5 (Version None)
Quarter: 2011Q3

REPORT INFORMATION
  Report Type: 
  Country: None (occurrence: None)
  Receive Date: 20110923
  Receipt Date: 20110920
  Transmission Date: 20111222
  Serious: Yes (Other)
  Sender: FDA-Public Use
  Company Number: AU-ROCHE-790417

PATIENT
  Sex: Female

DRUGS (7)
  1. FOLIC ACID [Concomitant]
  2. NEXIUM [Concomitant]
  3. METHOTREXATE [Concomitant]
  4. VITAMIN D [Concomitant]
     Dosage: DRUG NAME REPORTED AS VITAMIN D.
  5. TOCILIZUMAB [Suspect]
     Indication: RHEUMATOID ARTHRITIS
     Dosage: LAST INFUSION: 15 JULY 2011
     Route: 042
     Dates: start: 20110519
  6. ARAVA [Concomitant]
  7. SULFASALAZINE [Concomitant]
     Route: 065

REACTIONS (4)
  - EYE IRRITATION [None]
  - EYE SWELLING [None]
  - DRUG HYPERSENSITIVITY [None]
  - MOUTH ULCERATION [None]
